FAERS Safety Report 23868174 (Version 1)
Quarter: 2024Q2

REPORT INFORMATION
  Report Type: Spontaneous
  Country: US (occurrence: None)
  Receive Date: 20240516
  Receipt Date: 20240516
  Transmission Date: 20240716
  Serious: Yes (Hospitalization)
  Sender: FDA-Public Use
  Company Number: None

PATIENT
  Age: 80 Year
  Sex: Female
  Weight: 62.1 kg

DRUGS (1)
  1. ENASIDENIB [Suspect]
     Active Substance: ENASIDENIB
     Indication: Myelodysplastic syndrome
     Dosage: OTHER FREQUENCY : DAILY ON DAYS 1-14;?
     Route: 048
     Dates: start: 20210406, end: 20240414

REACTIONS (6)
  - Confusional state [None]
  - Abnormal behaviour [None]
  - Choking [None]
  - Metastatic renal cell carcinoma [None]
  - Metastases to lung [None]
  - Metastases to central nervous system [None]

NARRATIVE: CASE EVENT DATE: 20240510
